FAERS Safety Report 12066810 (Version 1)
Quarter: 2016Q1

REPORT INFORMATION
  Report Type: Spontaneous
  Country: US (occurrence: US)
  Receive Date: 20160211
  Receipt Date: 20160211
  Transmission Date: 20160526
  Serious: Yes (Hospitalization, Other)
  Sender: FDA-Public Use
  Company Number: US-DRREDDYS-USA/USA/16/0070320

PATIENT
  Age: 59 Year
  Sex: Male

DRUGS (7)
  1. VALGANCICLOVIR [Suspect]
     Active Substance: VALGANCICLOVIR
     Indication: ABSCESS FUNGAL
  2. SULFAMETHOXAZOLE/TRIMETHOPRIM [Concomitant]
     Active Substance: SULFAMETHOXAZOLE\TRIMETHOPRIM
     Indication: PRODUCT USED FOR UNKNOWN INDICATION
     Route: 065
  3. FLUCONAZOLE. [Suspect]
     Active Substance: FLUCONAZOLE
     Indication: WOUND INFECTION FUNGAL
     Route: 065
  4. FLUCONAZOLE. [Suspect]
     Active Substance: FLUCONAZOLE
     Indication: PROPHYLAXIS
  5. TACROLIMUS. [Suspect]
     Active Substance: TACROLIMUS
     Indication: IMMUNOSUPPRESSION
     Route: 065
  6. VALGANCICLOVIR [Suspect]
     Active Substance: VALGANCICLOVIR
     Indication: PRODUCT USED FOR UNKNOWN INDICATION
     Route: 048
  7. VALGANCICLOVIR [Suspect]
     Active Substance: VALGANCICLOVIR
     Indication: PROPHYLAXIS

REACTIONS (8)
  - Eye abscess [Recovering/Resolving]
  - Headache [Unknown]
  - Abscess fungal [Recovering/Resolving]
  - Photopsia [Unknown]
  - Urinary tract infection pseudomonal [Unknown]
  - Cytomegalovirus chorioretinitis [Unknown]
  - Wound infection fungal [Unknown]
  - Encephalomalacia [Unknown]
